FAERS Safety Report 17714844 (Version 1)
Quarter: 2020Q2

REPORT INFORMATION
  Report Type: Spontaneous
  Country: GB (occurrence: GB)
  Receive Date: 20200427
  Receipt Date: 20200427
  Transmission Date: 20200714
  Serious: Yes (Life-Threatening, Other)
  Sender: FDA-Public Use
  Company Number: GB-TAKEDA-2020TEU004259

PATIENT
  Age: 25 Year
  Sex: Male
  Weight: 87 kg

DRUGS (5)
  1. NAPROXEN. [Suspect]
     Active Substance: NAPROXEN
     Indication: BACK PAIN
     Dosage: UNK
     Route: 048
     Dates: start: 20200312, end: 20200402
  2. PREGABALIN. [Suspect]
     Active Substance: PREGABALIN
     Indication: BACK PAIN
     Dosage: UNK
     Route: 048
     Dates: start: 20200312, end: 20200402
  3. COCODAMOL [Suspect]
     Active Substance: ACETAMINOPHEN\CODEINE PHOSPHATE
     Indication: BACK PAIN
     Dosage: UNK
     Route: 048
     Dates: start: 20200312, end: 20200402
  4. AMITRIPTYLINE [Suspect]
     Active Substance: AMITRIPTYLINE
     Indication: BACK PAIN
     Dosage: UNK
     Route: 048
     Dates: start: 20200312, end: 20200402
  5. LANSOPRAZOLE. [Suspect]
     Active Substance: LANSOPRAZOLE
     Indication: BACK PAIN
     Dosage: UNK
     Route: 048
     Dates: start: 20200312, end: 20200402

REACTIONS (3)
  - Pain [Unknown]
  - Drug ineffective [Not Recovered/Not Resolved]
  - Stress [Unknown]

NARRATIVE: CASE EVENT DATE: 20200312
